FAERS Safety Report 5513700-7 (Version None)
Quarter: 2007Q4

REPORT INFORMATION
  Report Type: 
  Country: None (occurrence: None)
  Receive Date: 20071113
  Receipt Date: 20071105
  Transmission Date: 20080405
  Serious: Yes (Death)
  Sender: FDA-Public Use
  Company Number: CA-NOVOPROD-269129

PATIENT
  Age: 48 Year
  Sex: Female

DRUGS (1)
  1. NIASTASE [Suspect]
     Indication: HAEMORRHAGE
     Dosage: 90 UG/KG TOTAL: 4.8 MG
     Route: 042
     Dates: start: 20060206

REACTIONS (1)
  - INTESTINAL ISCHAEMIA [None]
